FAERS Safety Report 7982413-4 (Version None)
Quarter: 2011Q4

REPORT INFORMATION
  Report Type: 
  Country: None (occurrence: None)
  Receive Date: 20111215
  Receipt Date: 20111208
  Transmission Date: 20120403
  Serious: Yes (Death)
  Sender: FDA-Public Use
  Company Number: PHHY2011PL107033

PATIENT
  Sex: Female

DRUGS (2)
  1. RADIOTHERAPY [Concomitant]
  2. LETROZOLE [Suspect]
     Dosage: UNK UKN, UNK
     Dates: start: 20070212

REACTIONS (1)
  - DEATH [None]
